FAERS Safety Report 4522131-8 (Version None)
Quarter: 2004Q4

REPORT INFORMATION
  Report Type: 
  Country: None (occurrence: None)
  Receive Date: 20041206
  Receipt Date: 20041122
  Transmission Date: 20050328
  Serious: Yes (Disabling, Other)
  Sender: FDA-Public Use
  Company Number: 2004097447

PATIENT
  Age: 59 Year
  Sex: Male

DRUGS (6)
  1. TOLTERODINE (TOLTERODINE) [Suspect]
     Indication: POLLAKIURIA
     Dosage: 1 MG (1 MG, QD INTERVAL:  EVERY DAY), ORAL
     Route: 048
     Dates: start: 20041007, end: 20041014
  2. EMCONCOR  (BISOPROLOL) [Concomitant]
  3. RAMIPRIL [Concomitant]
  4. NORVASC [Concomitant]
  5. AMARYL [Concomitant]
  6. PRIMASPAN (ACETYLSALICYLIC ACID) [Concomitant]

REACTIONS (5)
  - APRAXIA [None]
  - ASTHENIA [None]
  - CEREBROVASCULAR ACCIDENT [None]
  - MOVEMENT DISORDER [None]
  - WEIGHT INCREASED [None]
